FAERS Safety Report 8974256 (Version 1)
Quarter: 2012Q4

REPORT INFORMATION
  Report Type: Spontaneous
  Country: GB (occurrence: None)
  Receive Date: 20121214
  Receipt Date: 20121214
  Transmission Date: 20130627
  Serious: Yes (Hospitalization)
  Sender: FDA-Public Use
  Company Number: GER/UKI/12/0026991

PATIENT
  Age: 55 Year
  Sex: Female
  Weight: 36.2 kg

DRUGS (2)
  1. GEMCITABINE (GEMCITABINE) [Suspect]
     Indication: PANCREATIC CANCER METASTATIC
     Route: 042
     Dates: start: 20121025
  2. METOCLOPRAMIDE [Concomitant]

REACTIONS (3)
  - Confusional state [None]
  - Cerebral ischaemia [None]
  - IIIrd nerve paralysis [None]
